FAERS Safety Report 23219822 (Version 1)
Quarter: 2023Q4

REPORT INFORMATION
  Report Type: Spontaneous
  Country: US (occurrence: US)
  Receive Date: 20231122
  Receipt Date: 20231122
  Transmission Date: 20240110
  Serious: No
  Sender: FDA-Public Use
  Company Number: US-AVADEL CNS PHARMACEUTICALS, LLC-2023AVA00133

PATIENT

DRUGS (1)
  1. LUMRYZ [Suspect]
     Active Substance: SODIUM OXYBATE
     Dosage: 6 G

REACTIONS (3)
  - Middle insomnia [Unknown]
  - Feeling abnormal [Unknown]
  - Therapeutic response shortened [Unknown]
